FAERS Safety Report 13595117 (Version 1)
Quarter: 2017Q2

REPORT INFORMATION
  Report Type: Spontaneous
  Country: BR (occurrence: BR)
  Receive Date: 20170531
  Receipt Date: 20170531
  Transmission Date: 20170830
  Serious: Yes (Hospitalization)
  Sender: FDA-Public Use
  Company Number: BR-ROCHE-1941725

PATIENT
  Age: 60 Year
  Sex: Male

DRUGS (3)
  1. HEPARIN [Concomitant]
     Active Substance: HEPARIN SODIUM
     Indication: PRODUCT USED FOR UNKNOWN INDICATION
  2. LOSARTAN POTASSIUM. [Concomitant]
     Active Substance: LOSARTAN POTASSIUM
     Indication: PRODUCT USED FOR UNKNOWN INDICATION
  3. ACTILYSE [Suspect]
     Active Substance: ALTEPLASE
     Indication: PORTAL VEIN THROMBOSIS
     Dosage: 10MG IN BOLUS AND 40 MG EVERY 24 HOURS VIA INTRA-ARTERIAL (SUPERIOR MESENTERIC ARTERY) FOR 3 DAYS
     Route: 013

REACTIONS (1)
  - Sepsis [Recovered/Resolved]
